FAERS Safety Report 4818924-X (Version None)
Quarter: 2005Q4

REPORT INFORMATION
  Report Type: 
  Country: None (occurrence: None)
  Receive Date: 20051102
  Receipt Date: 20051102
  Transmission Date: 20060501
  Serious: Yes (Hospitalization, Other)
  Sender: FDA-Public Use
  Company Number: None

PATIENT
  Sex: Male
  Weight: 59.5 kg

DRUGS (16)
  1. CYCLOPHOSPHAMIDE [Suspect]
     Indication: ACUTE LYMPHOCYTIC LEUKAEMIA
     Dosage: SEE IMAGE
     Route: 048
     Dates: start: 20050726
  2. ALLOPURINOL [Suspect]
     Dosage: SEE IMAGE
     Route: 048
     Dates: start: 20050726
  3. DAUNORUBICIN [Suspect]
     Dosage: SEE IMAGE
     Route: 042
     Dates: start: 20050726
  4. VINCRISTINE [Suspect]
     Dosage: SEE IMAGE
     Route: 042
     Dates: start: 20050726, end: 20051004
  5. DEXAMETHASONE [Suspect]
     Dosage: SEE IMAGE
     Route: 048
     Dates: start: 20050726
  6. ELSPAR [Suspect]
     Dosage: SEE IMAGE
     Route: 058
     Dates: start: 20050726
  7. G-CSF [Suspect]
     Dosage: SEE IMAGE
     Route: 058
     Dates: start: 20050726
  8. GLEEVEC [Suspect]
     Dosage: SEE IMAGE
     Route: 048
     Dates: start: 20050726
  9. METHOTREXATE [Suspect]
     Dosage: SEE IMAGE
     Dates: start: 20050726, end: 20051004
  10. CYCLOPHOSPHAMIDE [Suspect]
     Dosage: SEE IMAGE
     Route: 042
     Dates: start: 20050726
  11. CYTARABINE [Suspect]
     Dosage: SEE IMAGE
     Route: 042
     Dates: start: 20050726
  12. ELSPAR [Suspect]
     Dosage: SEE IMAGE
     Route: 058
     Dates: start: 20050726
  13. HYDROCORTISONE [Suspect]
     Dosage: SEE IMAGE
     Route: 037
     Dates: start: 20050726
  14. ACYCLOVIR [Concomitant]
  15. FLUCONAZOLE [Concomitant]
  16. PENTAMIDINE [Concomitant]

REACTIONS (5)
  - ASCITES [None]
  - ILEUS [None]
  - NEUTROPENIA [None]
  - PYREXIA [None]
  - THROMBOCYTOPENIA [None]
